FAERS Safety Report 7426410-6 (Version None)
Quarter: 2011Q2

REPORT INFORMATION
  Report Type: 
  Country: None (occurrence: None)
  Receive Date: 20110420
  Receipt Date: 20110418
  Transmission Date: 20111010
  Serious: Yes (Death, Hospitalization, Other)
  Sender: FDA-Public Use
  Company Number: JP-PFIZER INC-2011019204

PATIENT
  Age: 63 Year
  Sex: Male
  Weight: 52.4 kg

DRUGS (11)
  1. ALLOID [Concomitant]
     Dosage: 1 DF, 3X/DAY
     Route: 048
  2. POLARAMINE [Concomitant]
     Dosage: 5 MG, 1X/DAY
     Route: 042
     Dates: start: 20110126, end: 20110126
  3. TAKEPRON [Concomitant]
     Dosage: 10 MG, 1X/DAY
     Route: 048
     Dates: end: 20110219
  4. MANNITOL [Concomitant]
     Indication: RENAL CELL CARCINOMA
     Dosage: 200 ML, 1X/DAY
     Route: 042
     Dates: start: 20101215, end: 20101226
  5. TEMSIROLIMUS [Suspect]
     Indication: RENAL CELL CARCINOMA
     Dosage: 25 MG, WEEKLY
     Route: 042
     Dates: start: 20101229, end: 20110126
  6. POLARAMINE [Concomitant]
     Indication: PROPHYLAXIS
     Dosage: 6 MG, WEEKLY, ONLY ON TORISEL ADMIN DAY
     Route: 048
     Dates: start: 20101229, end: 20110119
  7. OXYCONTIN [Concomitant]
     Indication: RENAL CELL CARCINOMA
     Dosage: 5 MG, 2X/DAY
     Route: 048
  8. FENTANYL [Concomitant]
     Indication: RENAL CELL CARCINOMA
     Dosage: UNK
     Dates: start: 20110126, end: 20110219
  9. OXINORM [Concomitant]
     Indication: RENAL CELL CARCINOMA
     Dosage: UNK
     Route: 048
  10. DECADRON [Concomitant]
     Indication: RENAL CELL CARCINOMA
     Dosage: 6.6 MG, 4.95MG, 3.3MG, 1.15MG PER DAY
     Route: 042
     Dates: start: 20101215, end: 20101226
  11. LOXONIN [Concomitant]
     Indication: RENAL CELL CARCINOMA
     Dosage: 20 MG, 3X/DAY
     Route: 048

REACTIONS (2)
  - SEPSIS [None]
  - DIARRHOEA [None]
